FAERS Safety Report 7540239-X (Version None)
Quarter: 2011Q2

REPORT INFORMATION
  Report Type: 
  Country: None (occurrence: None)
  Receive Date: 20110610
  Receipt Date: 20110608
  Transmission Date: 20111010
  Serious: No
  Sender: FDA-Public Use
  Company Number: US-TEVA-285148USA

PATIENT
  Sex: Female
  Weight: 63.56 kg

DRUGS (3)
  1. SINEMET [Concomitant]
  2. AZILECT [Suspect]
     Indication: PARKINSON'S DISEASE
     Dosage: 1 MILLIGRAM;
     Route: 048
     Dates: start: 20110201, end: 20110607
  3. LANSOPRAZOLE [Concomitant]

REACTIONS (2)
  - TREMOR [None]
  - DYSPNOEA [None]
